FAERS Safety Report 7945538-5 (Version None)
Quarter: 2011Q4

REPORT INFORMATION
  Report Type: 
  Country: None (occurrence: None)
  Receive Date: 20111125
  Receipt Date: 20111101
  Transmission Date: 20120403
  Serious: Yes (Life-Threatening, Hospitalization)
  Sender: FDA-Public Use
  Company Number: 11-001273

PATIENT
  Age: 50 Year
  Sex: Female

DRUGS (7)
  1. ALBENDAZOLE (ALBENDAZOLE) [Suspect]
     Dosage: 400 MG; UNK
     Dates: start: 20110911, end: 20110915
  2. PRIMAQUINE [Suspect]
     Dosage: 30 MG, UNK, ORAL
     Route: 048
     Dates: start: 20110911, end: 20110916
  3. MAGNESIUM (MAGNESIUM HYDROXIDE) [Concomitant]
  4. DORYX [Suspect]
     Dosage: 100 MG, UNK, ORAL
     Route: 048
     Dates: start: 20110911, end: 20110911
  5. FISH OIL (FISH OIL) [Concomitant]
  6. CHOLECALCIFEROL (COLECALCIFEROL) [Concomitant]
  7. FUROSEMIDE [Concomitant]

REACTIONS (4)
  - LETHARGY [None]
  - METHAEMOGLOBINAEMIA [None]
  - PANCYTOPENIA [None]
  - SPLENOMEGALY [None]
